FAERS Safety Report 19860884 (Version 1)
Quarter: 2021Q3

REPORT INFORMATION
  Report Type: Spontaneous
  Country: US (occurrence: US)
  Receive Date: 20210920
  Receipt Date: 20210920
  Transmission Date: 20211014
  Serious: No
  Sender: FDA-Public Use
  Company Number: None

PATIENT
  Sex: Female

DRUGS (1)
  1. PAROXETINE. [Suspect]
     Active Substance: PAROXETINE

REACTIONS (11)
  - Transposition of the great vessels [None]
  - Sensory processing disorder [None]
  - Educational problem [None]
  - Fatigue [None]
  - Congenital anomaly [None]
  - Maternal drugs affecting foetus [None]
  - Developmental delay [None]
  - Legal problem [None]
  - Pain [None]
  - Quality of life decreased [None]
  - Decreased activity [None]
